FAERS Safety Report 8960430 (Version 1)
Quarter: 2012Q4

REPORT INFORMATION
  Report Type: 
  Country: JP (occurrence: JP)
  Receive Date: 20121211
  Receipt Date: 20121211
  Transmission Date: 20130627
  Serious: Yes (Other)
  Sender: FDA-Public Use
  Company Number: CHPA2012JP023640

PATIENT
  Age: 77 Year
  Sex: Female

DRUGS (2)
  1. PURSENNID [Suspect]
     Indication: CONSTIPATION
     Dosage: Unk, Unk
     Route: 048
  2. DRUG THERAPY NOS [Concomitant]
     Dosage: Unk, Unk

REACTIONS (1)
  - Blood potassium decreased [Unknown]
